FAERS Safety Report 5777250-5 (Version None)
Quarter: 2008Q2

REPORT INFORMATION
  Report Type: 
  Country: None (occurrence: None)
  Receive Date: 20080618
  Receipt Date: 20080609
  Transmission Date: 20081010
  Serious: Yes (Death)
  Sender: FDA-Public Use
  Company Number: US-ELI_LILLY_AND_COMPANY-US200805005257

PATIENT
  Age: 42 Year
  Sex: Male

DRUGS (1)
  1. ILETIN [Suspect]

REACTIONS (1)
  - DEATH [None]
